FAERS Safety Report 8817933 (Version 1)
Quarter: 2012Q4

REPORT INFORMATION
  Report Type: 
  Country: DK (occurrence: FR)
  Receive Date: 20121001
  Receipt Date: 20121001
  Transmission Date: 20130627
  Serious: Yes (Life-Threatening, Disabling)
  Sender: FDA-Public Use
  Company Number: FR-FRI-1000039067

PATIENT
  Age: 47 Year
  Sex: Female

DRUGS (9)
  1. ESCITALOPRAM [Suspect]
     Indication: DEPRESSION
     Dosage: 10 mg
     Route: 048
     Dates: start: 20120727, end: 20120813
  2. OLMETEC [Suspect]
     Indication: HYPERTENSION
     Dosage: 10 mg
     Route: 048
  3. CLIMASTON [Concomitant]
  4. LEVOTHYROX [Concomitant]
  5. PREVISCAN [Concomitant]
  6. VERATRAN [Concomitant]
  7. CALCIPARINE [Concomitant]
  8. VOLIBRIS [Concomitant]
  9. REVATIO [Concomitant]

REACTIONS (3)
  - Hyponatraemia [Not Recovered/Not Resolved]
  - Confusional state [Not Recovered/Not Resolved]
  - Osmotic demyelination syndrome [Not Recovered/Not Resolved]
